FAERS Safety Report 14959888 (Version 5)
Quarter: 2019Q1

REPORT INFORMATION
  Report Type: Report from Study
  Country: US (occurrence: US)
  Receive Date: 20180531
  Receipt Date: 20190313
  Transmission Date: 20190417
  Serious: Yes (Death, Hospitalization, Other)
  Sender: FDA-Public Use
  Company Number: US-ACTELION-A-NJ2018-171517

PATIENT
  Age: 70 Year
  Sex: Female
  Weight: 102.04 kg

DRUGS (13)
  1. OPSUMIT [Suspect]
     Active Substance: MACITENTAN
     Indication: PULMONARY HYPERTENSION
     Dosage: 10 MG, QD
     Route: 048
     Dates: start: 20140327
  2. UPTRAVI [Suspect]
     Active Substance: SELEXIPAG
     Indication: PULMONARY HYPERTENSION
     Dosage: 1600 MCG, BID
     Route: 048
  3. REVATIO [Concomitant]
     Active Substance: SILDENAFIL CITRATE
  4. ONDANSETRON [Concomitant]
     Active Substance: ONDANSETRON
  5. RENVELA [Concomitant]
     Active Substance: SEVELAMER CARBONATE
  6. ZINC. [Concomitant]
     Active Substance: ZINC
  7. MIDODRINE [Concomitant]
     Active Substance: MIDODRINE
  8. LACTULOSE. [Concomitant]
     Active Substance: LACTULOSE
  9. COMPAZINE [Concomitant]
     Active Substance: PROCHLORPERAZINE MALEATE
  10. UPTRAVI [Suspect]
     Active Substance: SELEXIPAG
     Dosage: 1400 MCG, BID
     Route: 048
  11. ADCIRCA [Concomitant]
     Active Substance: TADALAFIL
  12. FOLIC ACID. [Concomitant]
     Active Substance: FOLIC ACID
  13. PANTOPRAZOLE [Concomitant]
     Active Substance: PANTOPRAZOLE

REACTIONS (6)
  - Ascites [Unknown]
  - Hepatic cirrhosis [Unknown]
  - Abdominal cavity drainage [Unknown]
  - Pulmonary hypertension [Unknown]
  - Paracentesis [Unknown]
  - Death [Fatal]

NARRATIVE: CASE EVENT DATE: 201807
